FAERS Safety Report 9313169 (Version 1)
Quarter: 2013Q2

REPORT INFORMATION
  Report Type: Spontaneous
  Country: US (occurrence: US)
  Receive Date: 20130528
  Receipt Date: 20130528
  Transmission Date: 20140414
  Serious: No
  Sender: FDA-Public Use
  Company Number: US-ABBOTT-13P-163-1090557-00

PATIENT
  Age: 65 Year
  Sex: Male
  Weight: 101.7 kg

DRUGS (2)
  1. ANDROGEL [Suspect]
     Indication: BLOOD TESTOSTERONE DECREASED
     Route: 061
     Dates: start: 2013, end: 20130509
  2. ANDROGEL [Suspect]
     Route: 061
     Dates: start: 20130510

REACTIONS (2)
  - Drug administered at inappropriate site [Unknown]
  - Blood testosterone decreased [Unknown]
